FAERS Safety Report 5203560-6 (Version None)
Quarter: 2007Q1

REPORT INFORMATION
  Report Type: 
  Country: None (occurrence: None)
  Receive Date: 20070110
  Receipt Date: 20070103
  Transmission Date: 20070707
  Serious: Yes (Congenital Anomaly)
  Sender: FDA-Public Use
  Company Number: US-GLAXOSMITHKLINE-B0424116A

PATIENT

DRUGS (3)
  1. ZIDOVUDINE [Suspect]
  2. LAMIVUDINE [Suspect]
  3. ABACAVIR [Suspect]

REACTIONS (1)
  - HYPOSPADIAS [None]
